FAERS Safety Report 9456914 (Version 1)
Quarter: 2013Q3

REPORT INFORMATION
  Report Type: Spontaneous
  Country: HR (occurrence: HR)
  Receive Date: 20130813
  Receipt Date: 20130813
  Transmission Date: 20140515
  Serious: Yes (Other)
  Sender: FDA-Public Use
  Company Number: PHHY2013HR084489

PATIENT
  Age: 57 Year
  Sex: Male
  Weight: 94 kg

DRUGS (1)
  1. EXFORGE [Suspect]
     Indication: HYPERTENSION
     Dosage: 1 DF (VALS 160 MG, AMLO 5 MG)
     Route: 048
     Dates: start: 201212, end: 20130708

REACTIONS (3)
  - Pulmonary oedema [Not Recovered/Not Resolved]
  - Joint swelling [Not Recovered/Not Resolved]
  - Local swelling [Not Recovered/Not Resolved]
